FAERS Safety Report 25008274 (Version 1)
Quarter: 2025Q1

REPORT INFORMATION
  Report Type: Report from Study
  Country: FR (occurrence: FR)
  Receive Date: 20250225
  Receipt Date: 20250225
  Transmission Date: 20250409
  Serious: Yes (Other)
  Sender: ALEXION PHARMACEUTICALS
  Company Number: FR-AstraZeneca-CH-00791656A

PATIENT
  Age: 62 Year

DRUGS (1)
  1. OSIMERTINIB [Suspect]
     Active Substance: OSIMERTINIB
     Route: 065

REACTIONS (13)
  - Polyarteritis nodosa [Unknown]
  - Muscle spasms [Unknown]
  - Abdominal distension [Unknown]
  - Flatulence [Unknown]
  - Diarrhoea [Unknown]
  - Nausea [Unknown]
  - Skin disorder [Unknown]
  - Ingrowing nail [Unknown]
  - Mouth ulceration [Unknown]
  - Decubitus ulcer [Unknown]
  - Tendonitis [Unknown]
  - Alopecia [Unknown]
  - Fatigue [Unknown]
